FAERS Safety Report 8892402 (Version 2)
Quarter: 2012Q4

REPORT INFORMATION
  Report Type: 
  Country: US (occurrence: US)
  Receive Date: 20121107
  Receipt Date: 20121126
  Transmission Date: 20130627
  Serious: Yes (Death, Congenital Anomaly)
  Sender: FDA-Public Use
  Company Number: US-GLAXOSMITHKLINE-A1000162A

PATIENT
  Age: 0 Year
  Sex: Female
  Weight: .4 kg

DRUGS (1)
  1. PAXIL [Suspect]
     Indication: PRODUCT USED FOR UNKNOWN INDICATION
     Dosage: 20MG Per day
     Route: 064
     Dates: start: 20081022, end: 20100224

REACTIONS (15)
  - Premature baby [Fatal]
  - Cleft palate [Unknown]
  - Growth retardation [Unknown]
  - Talipes [Unknown]
  - Congenital tongue anomaly [Unknown]
  - Ear malformation [Unknown]
  - Congenital eye disorder [Unknown]
  - Respiratory distress [Unknown]
  - Premature baby [Unknown]
  - Micrognathia [Unknown]
  - Dysmorphism [Unknown]
  - Delayed fontanelle closure [Unknown]
  - Cranial sutures widening [Unknown]
  - Pulmonary hypoplasia [Unknown]
  - Foetal exposure during pregnancy [Unknown]
